FAERS Safety Report 5154228-6 (Version None)
Quarter: 2006Q4

REPORT INFORMATION
  Report Type: 
  Country: None (occurrence: None)
  Receive Date: 20061114
  Receipt Date: 20061102
  Transmission Date: 20070319
  Serious: Yes (Hospitalization, Other)
  Sender: FDA-Public Use
  Company Number: GXKR2006JP06867

PATIENT
  Age: 69 Year
  Sex: Male

DRUGS (4)
  1. RIFAMPICIN [Suspect]
     Indication: ATYPICAL MYCOBACTERIAL INFECTION
  2. ETHAMBUTOL HYDROCHLORIDE [Concomitant]
  3. CLARITHROMYCIN [Concomitant]
  4. STEROIDS NOS (NO INGREDIENTS/SUBSTANCES) [Concomitant]

REACTIONS (4)
  - AUTOIMMUNE THYROIDITIS [None]
  - HYPOTHYROIDISM [None]
  - MALAISE [None]
  - RASH [None]
